FAERS Safety Report 7099990-0 (Version None)
Quarter: 2010Q4

REPORT INFORMATION
  Report Type: 
  Country: None (occurrence: None)
  Receive Date: 20101112
  Receipt Date: 20101104
  Transmission Date: 20110411
  Serious: Yes (Hospitalization)
  Sender: FDA-Public Use
  Company Number: US-PURDUE-USA-2010-0052958

PATIENT
  Sex: Female

DRUGS (5)
  1. OXYCONTIN [Suspect]
     Indication: PAIN
  2. OXYCODONE HCL CR TABLETS (SIMILAR TO NDA 22-272) [Concomitant]
     Indication: BREAKTHROUGH PAIN
  3. SKELAXIN [Concomitant]
     Indication: MUSCLE RELAXANT THERAPY
  4. OMEPRAZOLE [Concomitant]
     Indication: ABDOMINAL DISCOMFORT
  5. RADIMEIDINE [Concomitant]
     Indication: ABDOMINAL DISCOMFORT

REACTIONS (4)
  - ABDOMINAL DISCOMFORT [None]
  - CHEST PAIN [None]
  - DRUG EFFECT DECREASED [None]
  - HOSPITALISATION [None]
